FAERS Safety Report 21960107 (Version 5)
Quarter: 2023Q2

REPORT INFORMATION
  Report Type: Report from Study
  Country: FR (occurrence: FR)
  Receive Date: 20230207
  Receipt Date: 20230411
  Transmission Date: 20230721
  Serious: Yes (Hospitalization)
  Sender: FDA-Public Use
  Company Number: FR-002147023-NVSC2023FR025179

PATIENT
  Sex: Male
  Weight: 65 kg

DRUGS (10)
  1. PLUVICTO [Suspect]
     Active Substance: LUTETIUM LU-177 VIPIVOTIDE TETRAXETAN
     Indication: Prostate cancer
     Dosage: 7123 MBQ (ONCE, 1ST CYCLE)
     Route: 042
     Dates: start: 20230106, end: 20230106
  2. PLUVICTO [Suspect]
     Active Substance: LUTETIUM LU-177 VIPIVOTIDE TETRAXETAN
     Dosage: 7094 MBQ, ONCE (2ND CYCLE)
     Route: 042
     Dates: start: 20230313, end: 20230313
  3. TRAMADOL [Concomitant]
     Active Substance: TRAMADOL
     Indication: Pain
     Dosage: UNK (100 LP, 1 TIME IN THE MORNING)
     Route: 065
  4. TRAMADOL [Concomitant]
     Active Substance: TRAMADOL
     Dosage: UNK (50 LP, 1 TIME IN THE EVENING)
     Route: 065
  5. ACETAMINOPHEN [Concomitant]
     Active Substance: ACETAMINOPHEN
     Indication: Pain
     Dosage: 1000 UNK (1X MORNING, NOON AND EVENING)
     Route: 065
  6. LOSARTAN [Concomitant]
     Active Substance: LOSARTAN
     Indication: Hypertension
     Dosage: 50 UNK (1 IN THE MORNING)
     Route: 065
  7. HYDROCORTISONE [Concomitant]
     Active Substance: HYDROCORTISONE
     Indication: Product used for unknown indication
     Dosage: 10 MG (1 MORNING AND 1 EVENING)
     Route: 065
  8. ENANTONE LP [Concomitant]
     Active Substance: LEUPROLIDE ACETATE
     Indication: Product used for unknown indication
     Dosage: UNK, (QUARTERLY)
     Route: 065
  9. CHOLECALCIFEROL [Concomitant]
     Active Substance: CHOLECALCIFEROL
     Indication: Product used for unknown indication
     Dosage: 5000 UNK, QMO (IN AMPOULE)
     Route: 048
  10. FERINJECT [Concomitant]
     Active Substance: FERRIC CARBOXYMALTOSE
     Indication: Product used for unknown indication
     Dosage: UNK
     Route: 065
     Dates: start: 20230106

REACTIONS (8)
  - Hyponatraemia [Recovered/Resolved]
  - General physical health deterioration [Unknown]
  - Asthenia [Unknown]
  - Nausea [Unknown]
  - Hyponatraemia [Recovering/Resolving]
  - Arthralgia [Unknown]
  - Decreased appetite [Unknown]
  - Hypoalbuminaemia [Unknown]

NARRATIVE: CASE EVENT DATE: 20230109
